FAERS Safety Report 17074169 (Version 1)
Quarter: 2019Q4

REPORT INFORMATION
  Report Type: Spontaneous
  Country: FR (occurrence: FR)
  Receive Date: 20191126
  Receipt Date: 20191126
  Transmission Date: 20200122
  Serious: Yes (Hospitalization, Other)
  Sender: FDA-Public Use
  Company Number: FR-AUROBINDO-AUR-APL-2019-074599

PATIENT
  Age: 89 Year
  Sex: Male
  Weight: 88 kg

DRUGS (3)
  1. SERESTA [Suspect]
     Active Substance: OXAZEPAM
     Indication: SLEEP DISORDER
     Dosage: 5 MILLIGRAM, ONCE A DAY
     Route: 048
     Dates: end: 20191029
  2. LAROXYL [Suspect]
     Active Substance: AMITRIPTYLINE HYDROCHLORIDE
     Indication: DEPRESSION
     Dosage: 15 GTT DROPS, ONCE A DAY
     Route: 048
     Dates: end: 20191031
  3. TRAMADOL. [Suspect]
     Active Substance: TRAMADOL
     Indication: BONE PAIN
     Dosage: UNK,INCONNUE
     Route: 048
     Dates: start: 20191015, end: 20191027

REACTIONS (2)
  - Hallucination, visual [Recovered/Resolved]
  - Disorientation [Recovered/Resolved]

NARRATIVE: CASE EVENT DATE: 201910
